FAERS Safety Report 11777931 (Version 5)
Quarter: 2016Q1

REPORT INFORMATION
  Report Type: Spontaneous
  Country: JP (occurrence: JP)
  Receive Date: 20151125
  Receipt Date: 20160323
  Transmission Date: 20160525
  Serious: Yes (Death, Hospitalization)
  Sender: FDA-Public Use
  Company Number: JP-BRISTOL-MYERS SQUIBB COMPANY-BMS-2015-079239

PATIENT
  Age: 68 Year
  Sex: Male
  Weight: 47 kg

DRUGS (8)
  1. ELPLAT [Suspect]
     Active Substance: OXALIPLATIN
     Dosage: 122 MG, QD
     Route: 042
     Dates: start: 20150511
  2. 5 FU [Suspect]
     Active Substance: FLUOROURACIL
     Dosage: 432 DF, QD
     Route: 040
     Dates: start: 20150511
  3. ELPLAT [Suspect]
     Active Substance: OXALIPLATIN
     Indication: COLORECTAL CANCER
     Dosage: 122 MG, QD
     Route: 042
     Dates: start: 20140818, end: 20150406
  4. CALCIUM FOLINATE [Concomitant]
     Active Substance: LEUCOVORIN CALCIUM
     Indication: COLORECTAL CANCER
     Dosage: UNK UNK, UNKNOWN
     Route: 042
     Dates: start: 20140818
  5. 5 FU [Suspect]
     Active Substance: FLUOROURACIL
     Indication: COLORECTAL CANCER
     Dosage: 576 MG, QD
     Route: 040
     Dates: start: 20140818, end: 20150406
  6. CETUXIMAB [Suspect]
     Active Substance: CETUXIMAB
     Indication: COLORECTAL CANCER
     Dosage: 576 MG, QD
     Route: 042
     Dates: start: 20140818, end: 20140818
  7. 5 FU [Suspect]
     Active Substance: FLUOROURACIL
     Dosage: 3461 DF, QD
     Route: 042
     Dates: start: 20140818, end: 20150406
  8. 5 FU [Suspect]
     Active Substance: FLUOROURACIL
     Dosage: 2307 DF, QD
     Route: 042
     Dates: start: 20150511

REACTIONS (3)
  - Disseminated intravascular coagulation [Not Recovered/Not Resolved]
  - Malignant neoplasm progression [Fatal]
  - Interstitial lung disease [Not Recovered/Not Resolved]

NARRATIVE: CASE EVENT DATE: 20151108
